FAERS Safety Report 9379256 (Version 1)
Quarter: 2013Q3

REPORT INFORMATION
  Report Type: Spontaneous
  Country: FR (occurrence: FR)
  Receive Date: 20130702
  Receipt Date: 20130702
  Transmission Date: 20140515
  Serious: Yes (Other)
  Sender: FDA-Public Use
  Company Number: FR-JNJFOC-20130306495

PATIENT
  Age: 51 Year
  Sex: Male
  Weight: 107 kg

DRUGS (15)
  1. STELARA [Suspect]
     Indication: PSORIASIS
     Route: 058
     Dates: start: 20130128, end: 20130128
  2. STELARA [Suspect]
     Indication: PSORIASIS
     Route: 058
     Dates: start: 20121228
  3. STELARA [Suspect]
     Indication: PSORIASIS
     Route: 058
     Dates: start: 20121028
  4. STELARA [Suspect]
     Indication: PSORIATIC ARTHROPATHY
     Route: 058
     Dates: start: 20130128, end: 20130128
  5. STELARA [Suspect]
     Indication: PSORIATIC ARTHROPATHY
     Route: 058
     Dates: start: 20121028
  6. STELARA [Suspect]
     Indication: PSORIATIC ARTHROPATHY
     Route: 058
     Dates: start: 20121228
  7. STELARA [Suspect]
     Indication: GUTTATE PSORIASIS
     Route: 058
     Dates: start: 20130128, end: 20130128
  8. STELARA [Suspect]
     Indication: GUTTATE PSORIASIS
     Route: 058
     Dates: start: 20121028
  9. STELARA [Suspect]
     Indication: GUTTATE PSORIASIS
     Route: 058
     Dates: start: 20121228
  10. METOJECT [Suspect]
     Indication: PSORIATIC ARTHROPATHY
     Route: 065
     Dates: start: 2007, end: 201303
  11. LERCAN 10 [Concomitant]
     Indication: HYPERTENSION
     Route: 065
     Dates: start: 2010
  12. ATACAND [Concomitant]
     Indication: HYPERTENSION
     Route: 065
     Dates: start: 2011
  13. SKENAN [Concomitant]
     Indication: PSORIATIC ARTHROPATHY
     Route: 065
     Dates: start: 2011
  14. BI-PROFENID [Concomitant]
     Indication: PSORIATIC ARTHROPATHY
     Route: 065
     Dates: start: 2011
  15. INIPOMP [Concomitant]
     Indication: PSORIATIC ARTHROPATHY
     Route: 065
     Dates: start: 2011

REACTIONS (6)
  - Hypersensitivity [Unknown]
  - Bronchopulmonary aspergillosis allergic [Recovered/Resolved]
  - Psoriasis [Unknown]
  - Nausea [Unknown]
  - Bronchitis [Unknown]
  - Off label use [Unknown]
